FAERS Safety Report 8773408 (Version 1)
Quarter: 2012Q4

REPORT INFORMATION
  Report Type: 
  Country: US (occurrence: US)
  Receive Date: 20120907
  Receipt Date: 20120907
  Transmission Date: 20130627
  Serious: Yes (Other)
  Sender: FDA-Public Use
  Company Number: US-VERTEX PHARMACEUTICAL INC.-AE-2012-011989

PATIENT
  Age: 58 Year
  Sex: Female
  Weight: 75 kg

DRUGS (8)
  1. INCIVEK [Suspect]
     Indication: HEPATITIS C
     Route: 048
     Dates: start: 20120711, end: 20120810
  2. PEGASYS [Concomitant]
     Indication: HEPATITIS C
     Route: 058
     Dates: start: 20120711, end: 20120810
  3. RIBAVIRIN [Concomitant]
     Indication: HEPATITIS C
     Route: 048
     Dates: start: 20120711, end: 20120806
  4. RIBAVIRIN [Concomitant]
     Route: 048
     Dates: start: 20120806, end: 20120810
  5. LISINOPRIL [Concomitant]
     Route: 048
  6. ELAVIL [Concomitant]
     Route: 048
  7. GLYBURIDE [Concomitant]
     Indication: DIABETES MELLITUS
     Route: 048
  8. METFORMIN [Concomitant]
     Indication: DIABETES MELLITUS

REACTIONS (2)
  - Transfusion [Unknown]
  - Drug dose omission [Unknown]
